FAERS Safety Report 6275599-3 (Version None)
Quarter: 2009Q3

REPORT INFORMATION
  Report Type: 
  Country: None (occurrence: None)
  Receive Date: 20090721
  Receipt Date: 20090707
  Transmission Date: 20100115
  Serious: Yes (Hospitalization)
  Sender: FDA-Public Use
  Company Number: NL-NAPPMUNDI-GBR-2009-0005338

PATIENT
  Sex: Female

DRUGS (2)
  1. OXYCONTIN [Suspect]
     Indication: BONE PAIN
     Dosage: 5 MG, DAILY
     Route: 065
     Dates: start: 20080507, end: 20080509
  2. IBUPROFEN [Concomitant]
     Dosage: 3 X 600 MG, UNK
     Route: 065

REACTIONS (1)
  - HOSPITALISATION [None]
